FAERS Safety Report 16369041 (Version 8)
Quarter: 2019Q3

REPORT INFORMATION
  Report Type: Spontaneous
  Country: US (occurrence: US)
  Receive Date: 20190529
  Receipt Date: 20190916
  Transmission Date: 20191004
  Serious: Yes (Hospitalization)
  Sender: FDA-Public Use
  Company Number: US-SUNOVION-2019SUN002123

PATIENT
  Age: 52 Year
  Sex: Female
  Weight: 83.9 kg

DRUGS (10)
  1. LUNESTA [Suspect]
     Active Substance: ESZOPICLONE
     Indication: INSOMNIA
     Dosage: 3 MG
     Route: 048
  2. LUNESTA [Suspect]
     Active Substance: ESZOPICLONE
     Indication: SLEEP DISORDER
     Dosage: 2 MG, HS AT 8 PM
     Route: 048
     Dates: start: 2015, end: 2016
  3. IPRATROPIUM BROMIDE. [Concomitant]
     Active Substance: IPRATROPIUM BROMIDE
     Dosage: UNK
     Route: 055
  4. EFFEXOR [Concomitant]
     Active Substance: VENLAFAXINE HYDROCHLORIDE
     Dosage: UNK
     Dates: start: 2015
  5. LUNESTA [Suspect]
     Active Substance: ESZOPICLONE
     Dosage: 1 MG
     Route: 048
  6. SEROQUEL [Suspect]
     Active Substance: QUETIAPINE FUMARATE
     Indication: AFFECTIVE DISORDER
  7. ESZOPICLONE. [Suspect]
     Active Substance: ESZOPICLONE
     Indication: SLEEP DISORDER
     Dosage: 2 MG, AS NECESSARY TOOK SPORADICALLY ALTERNATING WITH THE 3 MG
     Dates: start: 20190415
  8. LUNESTA [Suspect]
     Active Substance: ESZOPICLONE
     Indication: RAPID EYE MOVEMENTS SLEEP ABNORMAL
     Dosage: 2 MG, AS NECESSARY TOOK SPORADICALLY ALTERNATING WITH THE 3 MG
     Route: 048
     Dates: start: 20190415
  9. SEROQUEL [Suspect]
     Active Substance: QUETIAPINE FUMARATE
     Indication: SLEEP DISORDER
     Dosage: UNK
     Route: 065
  10. ESZOPICLONE. [Suspect]
     Active Substance: ESZOPICLONE
     Indication: INSOMNIA
     Dosage: 3 MG, AS NECESSARY TOOK SPORADICALLY ALTERNATING WITH THE 2 MG
     Route: 048
     Dates: start: 20190404

REACTIONS (16)
  - Rapid eye movements sleep abnormal [Not Recovered/Not Resolved]
  - Drug ineffective [Not Recovered/Not Resolved]
  - Sleep apnoea syndrome [Unknown]
  - Stress [Unknown]
  - Nausea [Unknown]
  - Therapeutic product effect decreased [Not Recovered/Not Resolved]
  - Insomnia [Not Recovered/Not Resolved]
  - Injury [Unknown]
  - Psychotic disorder [Not Recovered/Not Resolved]
  - Hangover [Unknown]
  - Sleep deficit [Not Recovered/Not Resolved]
  - Middle insomnia [Not Recovered/Not Resolved]
  - Feeling abnormal [Not Recovered/Not Resolved]
  - Amnesia [Recovered/Resolved]
  - Amnesia [Not Recovered/Not Resolved]
  - Paranoia [Unknown]

NARRATIVE: CASE EVENT DATE: 201905
